FAERS Safety Report 4555058-6 (Version None)
Quarter: 2004Q4

REPORT INFORMATION
  Report Type: 
  Country: None (occurrence: None)
  Receive Date: 20041217
  Receipt Date: 20040803
  Transmission Date: 20050328
  Serious: No
  Sender: FDA-Public Use
  Company Number: 2004-BP-05269BP

PATIENT
  Age: 71 Year
  Sex: Female

DRUGS (6)
  1. SPIRIVA HANDIHANDLER (TIOTROPIUM BROMIDE) [Suspect]
     Indication: CHRONIC OBSTRUCTIVE AIRWAYS DISEASE
     Dosage: 18 MCG (18 MCG), IH
     Route: 055
     Dates: start: 20040629
  2. PREVACID [Concomitant]
  3. LANOXIN [Concomitant]
  4. ULTREON (AZITHROMYCIN) [Concomitant]
  5. IMURAN [Concomitant]
  6. ADVAIR (SERETIDE MITE) [Concomitant]

REACTIONS (2)
  - INSOMNIA [None]
  - POLLAKIURIA [None]
